FAERS Safety Report 9126599 (Version 1)
Quarter: 2013Q1

REPORT INFORMATION
  Report Type: Spontaneous
  Country: US (occurrence: None)
  Receive Date: 20130130
  Receipt Date: 20130130
  Transmission Date: 20140127
  Serious: Yes (Death)
  Sender: FDA-Public Use
  Company Number: B0858923A

PATIENT
  Age: 47 Year
  Sex: Male

DRUGS (4)
  1. BUPROPION [Suspect]
     Route: 048
  2. UNSPECIFIED INGREDIENTS [Suspect]
     Route: 048
  3. ZOLPIDEM [Suspect]
     Route: 048
  4. CITALOPRAM [Suspect]
     Route: 048

REACTIONS (3)
  - Completed suicide [None]
  - Overdose [None]
  - Cardio-respiratory arrest [None]
